FAERS Safety Report 9820323 (Version 1)
Quarter: 2014Q1

REPORT INFORMATION
  Report Type: Spontaneous
  Country: US (occurrence: None)
  Receive Date: 20140114
  Receipt Date: 20140114
  Transmission Date: 20141002
  Serious: Yes (Other)
  Sender: FDA-Public Use
  Company Number: None

PATIENT
  Age: 23 Year
  Sex: Male

DRUGS (1)
  1. PRO-HEALTH TOOTHPASTE [Suspect]

REACTIONS (4)
  - Oral mucosal exfoliation [None]
  - Tongue exfoliation [None]
  - Feeling abnormal [None]
  - Discomfort [None]
